FAERS Safety Report 5907627-6 (Version None)
Quarter: 2008Q4

REPORT INFORMATION
  Report Type: 
  Country: None (occurrence: None)
  Receive Date: 20081002
  Receipt Date: 20081002
  Transmission Date: 20090506
  Serious: Yes (Hospitalization)
  Sender: FDA-Public Use
  Company Number: None

PATIENT
  Sex: Male
  Weight: 108.7 kg

DRUGS (14)
  1. SORAFENIB [Suspect]
     Indication: PROSTATE CANCER
     Dosage: 200MG QD PO
     Route: 048
     Dates: start: 20080320
  2. OMEPRAZOLE [Concomitant]
  3. METOPROLOL TARTRATE [Concomitant]
  4. DECADRON [Concomitant]
  5. REGLAN [Concomitant]
  6. LUPRON [Concomitant]
  7. ZANTAC [Concomitant]
  8. PROVENTIL [Concomitant]
  9. BENAZEPRIL HYDROCHLORIDE [Concomitant]
  10. COUMADIN [Concomitant]
  11. COMPAZINE [Concomitant]
  12. KEFLEX [Concomitant]
  13. ADVAIR DISKUS 100/50 [Concomitant]
  14. ZOMETA [Concomitant]

REACTIONS (2)
  - CLOSTRIDIUM DIFFICILE COLITIS [None]
  - DEHYDRATION [None]
